FAERS Safety Report 6340588-7 (Version None)
Quarter: 2009Q3

REPORT INFORMATION
  Report Type: 
  Country: None (occurrence: None)
  Receive Date: 20090902
  Receipt Date: 20090824
  Transmission Date: 20100115
  Serious: Yes (Other)
  Sender: FDA-Public Use
  Company Number: GXKR2009NO09601

PATIENT
  Age: 75 Year
  Sex: Female

DRUGS (5)
  1. RANITIDINE [Suspect]
     Indication: GASTRITIS
     Dosage: 300 MG/DAY, ORAL
     Route: 048
     Dates: start: 20090701, end: 20090728
  2. SOMAC         (PANTOPRAZOLE SODIUM) TABLET, 20MG [Suspect]
     Indication: GASTRITIS
  3. CENTYL (BENDROFLUMETHIAZIDE) TABLET, 5 MG [Concomitant]
  4. TRIOBE (CYANOCOBALAMIN, FOLIC ACID, PYRIDOXINE) [Suspect]
  5. PYRIDOXINE [Concomitant]

REACTIONS (6)
  - CONFUSIONAL STATE [None]
  - FATIGUE [None]
  - HALLUCINATION, VISUAL [None]
  - LISTLESS [None]
  - NEUROLOGICAL SYMPTOM [None]
  - VISION BLURRED [None]
